FAERS Safety Report 24694454 (Version 1)
Quarter: 2024Q4

REPORT INFORMATION
  Report Type: Spontaneous
  Country: US (occurrence: US)
  Receive Date: 20241204
  Receipt Date: 20241204
  Transmission Date: 20250114
  Serious: Yes (Other)
  Sender: PROCTER AND GAMBLE
  Company Number: US-MLMSERVICE-20241115-PI258649-00029-1

PATIENT
  Age: 45 Year
  Sex: Female

DRUGS (1)
  1. ACETAMINOPHEN [Suspect]
     Active Substance: ACETAMINOPHEN
     Dosage: UNK

REACTIONS (5)
  - Acute kidney injury [Recovered/Resolved]
  - Accidental overdose [Unknown]
  - Renal atrophy [Unknown]
  - Azotaemia [Recovering/Resolving]
  - Renal transplant failure [Recovering/Resolving]
